FAERS Safety Report 6511487-2 (Version None)
Quarter: 2009Q4

REPORT INFORMATION
  Report Type: 
  Country: None (occurrence: None)
  Receive Date: 20091222
  Receipt Date: 20091214
  Transmission Date: 20100525
  Serious: Yes (Death, Other)
  Sender: FDA-Public Use
  Company Number: HQWYE682625JUN04

PATIENT
  Sex: Female

DRUGS (1)
  1. PREMARIN [Suspect]
     Indication: HORMONE REPLACEMENT THERAPY
     Dosage: UNSPECIFIED DOSAGE
     Route: 048
     Dates: start: 19910101, end: 20030101

REACTIONS (2)
  - ENDOMETRIAL CANCER METASTATIC [None]
  - OVARIAN CANCER [None]
